FAERS Safety Report 25754311 (Version 2)
Quarter: 2025Q4

REPORT INFORMATION
  Report Type: Spontaneous
  Country: US (occurrence: US)
  Receive Date: 20250903
  Receipt Date: 20251115
  Transmission Date: 20260117
  Serious: No
  Sender: BIOGEN
  Company Number: US-BIOGEN-2025BI01318319

PATIENT
  Age: 49 Year
  Sex: Male

DRUGS (3)
  1. TYSABRI [Suspect]
     Active Substance: NATALIZUMAB
     Indication: Relapsing-remitting multiple sclerosis
     Dosage: EXPIRY DATE UNKNOWN
     Dates: start: 2014, end: 2024
  2. TYSABRI [Suspect]
     Active Substance: NATALIZUMAB
     Dates: start: 20230306, end: 20240905
  3. TYSABRI [Suspect]
     Active Substance: NATALIZUMAB
     Dates: start: 20140127, end: 20220616

REACTIONS (2)
  - Liver function test increased [Recovering/Resolving]
  - Blood alcohol increased [Unknown]
